FAERS Safety Report 12597814 (Version 2)
Quarter: 2016Q3

REPORT INFORMATION
  Report Type: Spontaneous
  Country: US (occurrence: US)
  Receive Date: 20160727
  Receipt Date: 20160915
  Transmission Date: 20161109
  Serious: No
  Sender: FDA-Public Use
  Company Number: US-PFIZER INC-2016355853

PATIENT
  Age: 63 Year
  Sex: Male
  Weight: 107.3 kg

DRUGS (20)
  1. LYRICA [Suspect]
     Active Substance: PREGABALIN
     Indication: BACK PAIN
     Dosage: 50 MG, 3X/DAY
     Route: 048
     Dates: start: 20160519
  2. LOSARTAN POTASSIUM. [Concomitant]
     Active Substance: LOSARTAN POTASSIUM
     Dosage: 100 MG, 1X/DAY
     Route: 048
  3. BACLOFEN. [Concomitant]
     Active Substance: BACLOFEN
     Dosage: 10 MG, 2X/DAY
     Route: 048
  4. TRIAMCINOLONE ACETONIDE. [Concomitant]
     Active Substance: TRIAMCINOLONE ACETONIDE
     Dosage: UNK UNK, 2X/DAY (0.5% CREAM, EXTERNAL AS DIRECTED)
     Route: 061
  5. PROBIOTIC [Concomitant]
     Active Substance: PROBIOTICS NOS
     Dosage: UNK UNK, AS NEEDED
     Route: 048
  6. METFORMIN HCL [Concomitant]
     Active Substance: METFORMIN HYDROCHLORIDE
     Dosage: 1000 MG, 2X/DAY
     Route: 048
  7. TRAVATAN Z [Concomitant]
     Active Substance: TRAVOPROST
     Dosage: UNK UNK, 1X/DAY (.004% SOLUTION, OPHTHALMIC DAILY)
     Route: 047
  8. PROAIR HFA [Concomitant]
     Active Substance: ALBUTEROL SULFATE
     Dosage: UNK, AS NEEDED, (108 (90 BASE)MCG/ACT AEROSOL SOLN, INHALATION EVERY FOUR-SIX HOURS AS NEEDED))
     Route: 055
  9. LYRICA [Suspect]
     Active Substance: PREGABALIN
     Dosage: 200 MG, 3X/DAY
     Dates: start: 20160713
  10. SIMVASTATIN. [Concomitant]
     Active Substance: SIMVASTATIN
     Dosage: 40 MG, 1X/DAY (40MG TABLET, 1 ORAL AT BEDTIME)
     Route: 048
  11. COMBIGAN [Concomitant]
     Active Substance: BRIMONIDINE TARTRATE\TIMOLOL MALEATE
     Dosage: 2 GTT, 2X/DAY (0.2-0.5% SOLUTION, 1 DROP EACH EYE OPHTHALMIC TWO TIMES DAILY)
     Route: 047
  12. DIPHENHYDRAMINE HCL [Concomitant]
     Active Substance: DIPHENHYDRAMINE HYDROCHLORIDE
     Dosage: 25 MG, AS NEEDED
     Route: 048
  13. RUTIN [Concomitant]
     Active Substance: RUTIN
     Dosage: 50 MG, AS NEEDED
     Route: 048
  14. PROZAC [Concomitant]
     Active Substance: FLUOXETINE HYDROCHLORIDE
     Dosage: 40 MG, 1X/DAY
     Route: 048
  15. HYDROCHLOROTHIAZIDE. [Concomitant]
     Active Substance: HYDROCHLOROTHIAZIDE
     Dosage: 12.5 MG, DAILY
     Route: 048
  16. NAPROSYN [Concomitant]
     Active Substance: NAPROXEN
     Dosage: 250 MG, AS NEEDED
     Route: 048
  17. OXYCODONE AND ACETAMINOPHEN [Concomitant]
     Active Substance: ACETAMINOPHEN\OXYCODONE HYDROCHLORIDE
     Dosage: 1 DF, AS NEEDED  [OXYCODONE HYDROCHLORIDE 10MG, PARACETAMOL 325MG TABLET 1 (ONE) ORAL THREE TIME]
     Route: 048
     Dates: start: 20160519
  18. DORZOLAMIDE HCL [Concomitant]
     Active Substance: DORZOLAMIDE HYDROCHLORIDE
     Dosage: UNK UNK, 3X/DAY (2% SOLUTION, OPHTHALMIC THREE TIMES DAILY)
     Route: 047
  19. LATANOPROST. [Concomitant]
     Active Substance: LATANOPROST
     Dosage: 2 GTT, 1X/DAY (0.005% SOLUTION, ONE DROP EACH EYE OPHTHALMIC AT BEDTIME)
     Route: 047
  20. NAPROXEN. [Concomitant]
     Active Substance: NAPROXEN
     Dosage: 500 MG, 2X/DAY
     Route: 048

REACTIONS (1)
  - Drug ineffective [Unknown]
